FAERS Safety Report 9973643 (Version 1)
Quarter: 2014Q1

REPORT INFORMATION
  Report Type: Spontaneous
  Country: JP (occurrence: JP)
  Receive Date: 20140306
  Receipt Date: 20140306
  Transmission Date: 20141002
  Serious: Yes (Death, Other)
  Sender: FDA-Public Use
  Company Number: PHHY2014JP023515

PATIENT
  Age: 20 Year
  Sex: Male

DRUGS (10)
  1. OLANZAPINE [Suspect]
     Indication: SCHIZOPHRENIA
     Dosage: 15 MG, PER DAY
  2. OLANZAPINE [Suspect]
     Dosage: 10 MG, PER DAY AT 8 MONTHS
  3. OLANZAPINE [Suspect]
     Dosage: 5 MG, PER DAY AT MONTHS
  4. HALOPERIDOL [Concomitant]
     Indication: SCHIZOPHRENIA
     Dosage: 100 MG, UNK
     Route: 030
  5. HALOPERIDOL [Concomitant]
     Dosage: 50 MG, AT 2MONTHS
  6. FLUNITRAZEPAM [Concomitant]
     Indication: INSOMNIA
     Dosage: 1 MG, UNK
  7. SENNOSIDE [Concomitant]
     Indication: CONSTIPATION
     Dosage: 12 MG, UNK
  8. NITRAZEPAM [Concomitant]
  9. RISPERIDONE [Concomitant]
     Indication: SCHIZOPHRENIA
     Dosage: 2 MG, PER DAY
  10. LOXOPROFEN [Concomitant]

REACTIONS (8)
  - Water intoxication [Fatal]
  - Hyponatraemia [Fatal]
  - Vomiting [Fatal]
  - Snoring [Unknown]
  - Circulatory collapse [Unknown]
  - Brain oedema [Unknown]
  - Pulmonary oedema [Unknown]
  - Abdominal distension [Fatal]
